FAERS Safety Report 24750019 (Version 2)
Quarter: 2025Q1

REPORT INFORMATION
  Report Type: Spontaneous
  Country: US (occurrence: US)
  Receive Date: 20241218
  Receipt Date: 20250213
  Transmission Date: 20250409
  Serious: No
  Sender: SANOFI AVENTIS
  Company Number: US-SA-2024SA370334

PATIENT
  Age: 63 Year
  Sex: Male

DRUGS (7)
  1. DUPIXENT [Suspect]
     Active Substance: DUPILUMAB
     Indication: Asthma
     Route: 058
     Dates: start: 202411, end: 202411
  2. DUPIXENT [Suspect]
     Active Substance: DUPILUMAB
     Dosage: 300 MG, QOW
     Route: 058
     Dates: start: 20241129
  3. MONTELUKAST [Concomitant]
     Active Substance: MONTELUKAST
  4. AIRSUPRA [BUDESONIDE;SALBUTAMOL SULFATE] [Concomitant]
  5. ALBUTEROL [Concomitant]
     Active Substance: ALBUTEROL
  6. BREZTRI [Concomitant]
     Active Substance: BUDESONIDE\FORMOTEROL\GLYCOPYRROLATE
  7. MAVYRET [Concomitant]
     Active Substance: GLECAPREVIR\PIBRENTASVIR

REACTIONS (3)
  - Hot flush [Recovered/Resolved]
  - Asthma [Unknown]
  - Productive cough [Unknown]

NARRATIVE: CASE EVENT DATE: 20241101
